FAERS Safety Report 19051467 (Version 1)
Quarter: 2021Q1

REPORT INFORMATION
  Report Type: Spontaneous
  Country: US (occurrence: US)
  Receive Date: 20210324
  Receipt Date: 20210324
  Transmission Date: 20210420
  Serious: Yes (Disabling)
  Sender: FDA-Public Use
  Company Number: None

PATIENT
  Age: 37 Year
  Sex: Female
  Weight: 60.75 kg

DRUGS (4)
  1. THYROID PILL [Concomitant]
  2. SCENT THEORY ? KEEP CLEAN MOISTURIZING HAND SANITIZER [Suspect]
     Active Substance: ALCOHOL
     Indication: COVID-19 PROPHYLAXIS
     Route: 061
     Dates: start: 20210215, end: 20210318
  3. SCENT THEORY ? KEEP CLEAN MOISTURIZING HAND SANITIZER [Suspect]
     Active Substance: ALCOHOL
     Indication: COVID-19 PROPHYLAXIS
     Route: 061
     Dates: start: 20210215, end: 20210318
  4. FLINSTONE VITAMINS [Concomitant]

REACTIONS (4)
  - Visual impairment [None]
  - Abdominal discomfort [None]
  - Dysgeusia [None]
  - Paraesthesia oral [None]

NARRATIVE: CASE EVENT DATE: 20210305
